FAERS Safety Report 12419004 (Version 1)
Quarter: 2016Q2

REPORT INFORMATION
  Report Type: Spontaneous
  Country: US (occurrence: None)
  Receive Date: 20160527
  Receipt Date: 20160527
  Transmission Date: 20160815
  Serious: No
  Sender: FDA-Public Use
  Company Number: None

PATIENT
  Age: 53 Year
  Sex: Female
  Weight: 68.49 kg

DRUGS (4)
  1. NORCO [Concomitant]
     Active Substance: ACETAMINOPHEN\HYDROCODONE BITARTRATE
  2. ADVIL [Concomitant]
     Active Substance: IBUPROFEN
  3. HYDROCODONE ACETAMINOPHEN 10-325, 10 MG [Suspect]
     Active Substance: ACETAMINOPHEN\HYDROCODONE BITARTRATE
     Indication: INTERVERTEBRAL DISC DEGENERATION
     Route: 048
     Dates: start: 20160503, end: 20160525
  4. MOBIC [Concomitant]
     Active Substance: MELOXICAM

REACTIONS (8)
  - Vertigo [None]
  - Lethargy [None]
  - Impaired quality of life [None]
  - Drug ineffective [None]
  - Product quality issue [None]
  - Impaired driving ability [None]
  - Somnolence [None]
  - Abdominal discomfort [None]

NARRATIVE: CASE EVENT DATE: 20160503
